FAERS Safety Report 8448879-0 (Version None)
Quarter: 2012Q2

REPORT INFORMATION
  Report Type: 
  Country: None (occurrence: None)
  Receive Date: 20120619
  Receipt Date: 20120614
  Transmission Date: 20120825
  Serious: Yes (Death, Hospitalization)
  Sender: FDA-Public Use
  Company Number: US-GLAXOSMITHKLINE-A0880767A

PATIENT
  Age: 57 Year
  Sex: Male
  Weight: 73 kg

DRUGS (9)
  1. OXYCONTIN [Concomitant]
  2. NEXIUM [Concomitant]
  3. AVANDIA [Suspect]
     Indication: TYPE 2 DIABETES MELLITUS
     Dosage: 4MG PER DAY
     Route: 048
     Dates: start: 20010101, end: 20090101
  4. VIREAD [Concomitant]
  5. EFFEXOR [Concomitant]
  6. TOPROL-XL [Concomitant]
  7. GABAPENTIN [Concomitant]
  8. LIPITOR [Concomitant]
  9. MINOXIDIL [Concomitant]

REACTIONS (5)
  - RENAL FAILURE CHRONIC [None]
  - ATRIAL FIBRILLATION [None]
  - CARDIAC FAILURE CONGESTIVE [None]
  - CEREBROVASCULAR ACCIDENT [None]
  - CARDIAC DISORDER [None]
